FAERS Safety Report 12395280 (Version 2)
Quarter: 2016Q2

REPORT INFORMATION
  Report Type: Report from Study
  Country: US (occurrence: US)
  Receive Date: 20160523
  Receipt Date: 20160614
  Transmission Date: 20160815
  Serious: Yes (Hospitalization, Other)
  Sender: FDA-Public Use
  Company Number: US-ABBVIE-16P-163-1629996-00

PATIENT
  Age: 32 Year
  Sex: Female
  Weight: 75.36 kg

DRUGS (3)
  1. MODERIBA [Suspect]
     Active Substance: RIBAVIRIN
     Indication: CHRONIC HEPATITIS C
     Route: 048
     Dates: start: 20160330
  2. VIEKIRA PAK [Suspect]
     Active Substance: DASABUVIR\OMBITASVIR\PARITAPREVIR\RITONAVIR
     Indication: CHRONIC HEPATITIS C
     Dosage: 250 MG
     Route: 048
     Dates: start: 20160330
  3. ALPRAZOLAM. [Concomitant]
     Active Substance: ALPRAZOLAM
     Indication: ANXIETY

REACTIONS (6)
  - Nervousness [Recovering/Resolving]
  - Anger [Not Recovered/Not Resolved]
  - Asthenia [Not Recovered/Not Resolved]
  - Drug dose omission [Recovered/Resolved]
  - Fatigue [Not Recovered/Not Resolved]
  - Burns second degree [Recovered/Resolved]

NARRATIVE: CASE EVENT DATE: 20160429
